FAERS Safety Report 9641040 (Version 7)
Quarter: 2013Q4

REPORT INFORMATION
  Report Type: Report from Study
  Country: US (occurrence: US)
  Receive Date: 20131023
  Receipt Date: 20131127
  Transmission Date: 20140711
  Serious: Yes (Death, Life-Threatening, Hospitalization)
  Sender: FDA-Public Use
  Company Number: US-PFIZER INC-2013274124

PATIENT
  Age: 64 Year
  Sex: Male
  Weight: 85 kg

DRUGS (13)
  1. BLINDED CELECOXIB [Suspect]
     Indication: COLON CANCER STAGE III
     Dosage: UNK MG, 1X/DAY
     Route: 048
     Dates: start: 20130507
  2. BLINDED PLACEBO [Suspect]
     Indication: COLON CANCER STAGE III
     Dosage: UNK MG, 1X/DAY
     Route: 048
     Dates: start: 20130507
  3. AMIODARONE HCL [Suspect]
     Dosage: UNK
  4. FLUOROURACIL [Suspect]
     Indication: ADENOCARCINOMA OF COLON
     Dosage: 400MG/M2 IVP ON DAY 1 FOLLOWED BY 5-FU 2400 MG/M2 IV OVER 46-48 HOURS ON DAY 1
     Route: 042
     Dates: start: 20130507, end: 20130814
  5. ELOXATIN [Suspect]
     Indication: COLON CANCER STAGE III
     Dosage: 85 MG/M2, IV OVER 2 HOURS ON DAY 1
     Route: 042
     Dates: start: 20130507, end: 20130812
  6. LEUCOVORIN [Concomitant]
     Indication: ADENOCARCINOMA OF COLON
     Dosage: 400MG/M2 IV OVER 2 HOURS ON DAY 1
     Route: 042
     Dates: start: 20130507, end: 20130814
  7. FUROSEMIDE [Concomitant]
     Dosage: UNK
  8. METFORMIN [Concomitant]
     Dosage: UNK
  9. MORPHINE [Concomitant]
     Dosage: UNK
  10. NORTRIPTYLINE [Concomitant]
     Dosage: UNK
  11. PREGABALIN [Concomitant]
     Dosage: UNK
  12. RAMIPRIL [Concomitant]
     Dosage: UNK
  13. RIVAROXABAN [Concomitant]
     Dosage: UNK

REACTIONS (1)
  - Pneumonitis [Fatal]
